FAERS Safety Report 15660617 (Version 1)
Quarter: 2018Q4

REPORT INFORMATION
  Report Type: Spontaneous
  Country: US (occurrence: US)
  Receive Date: 20181115
  Receipt Date: 20181115
  Transmission Date: 20190205
  Serious: Yes (Hospitalization)
  Sender: FDA-Public Use
  Company Number: None

PATIENT
  Age: 73 Year
  Sex: Male
  Weight: 64.41 kg

DRUGS (1)
  1. NIVOLUMAB [Suspect]
     Active Substance: NIVOLUMAB
     Indication: RENAL CELL CARCINOMA
     Dosage: ?          OTHER FREQUENCY:IV;?
     Route: 042
     Dates: start: 20180607, end: 20181010

REACTIONS (4)
  - Fatigue [None]
  - Nausea [None]
  - Vomiting [None]
  - Hepatic enzyme increased [None]

NARRATIVE: CASE EVENT DATE: 20181024
